FAERS Safety Report 23466213 (Version 1)
Quarter: 2024Q1

REPORT INFORMATION
  Report Type: Spontaneous
  Country: PL (occurrence: PL)
  Receive Date: 20240201
  Receipt Date: 20240201
  Transmission Date: 20240409
  Serious: Yes (Death, Life-Threatening, Hospitalization)
  Sender: FDA-Public Use
  Company Number: PL-POLPHARMA-IMP6000523

PATIENT
  Age: 27 Year
  Sex: Female

DRUGS (11)
  1. VORICONAZOLE [Suspect]
     Active Substance: VORICONAZOLE
     Indication: Product used for unknown indication
     Dosage: 200 MILLIGRAM, QD
     Route: 048
  2. AMPHOTERICIN B [Suspect]
     Active Substance: AMPHOTERICIN B
     Indication: Product used for unknown indication
     Dosage: 0.05 GRAM, QD (IN A LIPOSOMAL FORM)
     Route: 042
  3. CEFTAZIDIME [Suspect]
     Active Substance: CEFTAZIDIME
     Indication: Product used for unknown indication
     Dosage: 2 GRAM, Q8H (3 TIMES A DAY)
     Route: 042
  4. ENOXAPARIN [Concomitant]
     Active Substance: ENOXAPARIN
     Indication: Venous thrombosis
     Dosage: 60 MG/0.6 ML OR 40 MG/0.4 ML, BID
     Route: 065
  5. COLISTIN [Concomitant]
     Active Substance: COLISTIN
     Indication: Klebsiella infection
     Dosage: 1 MILLION IU, Q8H (INHALED, 3 TIMES DAY)
     Route: 055
  6. COLISTIN [Concomitant]
     Active Substance: COLISTIN
     Indication: Cytomegalovirus infection
  7. COLISTIN [Concomitant]
     Active Substance: COLISTIN
     Indication: Klebsiella infection
     Dosage: 3 MILLION IU, Q8H (3 TIMES A DAY)
     Route: 042
  8. COLISTIN [Concomitant]
     Active Substance: COLISTIN
     Indication: Cytomegalovirus infection
  9. VALGANCICLOVIR [Concomitant]
     Active Substance: VALGANCICLOVIR
     Indication: Klebsiella infection
     Dosage: 900 MG ONCE OR TWICE A DAY
     Route: 048
  10. VALGANCICLOVIR [Concomitant]
     Active Substance: VALGANCICLOVIR
     Indication: Cytomegalovirus infection
  11. HEPARIN [Concomitant]
     Active Substance: HEPARIN SODIUM
     Indication: Venous thrombosis
     Dosage: UNK
     Route: 065

REACTIONS (1)
  - Drug ineffective [Fatal]
